FAERS Safety Report 7717188-7 (Version None)
Quarter: 2011Q3

REPORT INFORMATION
  Report Type: 
  Country: None (occurrence: None)
  Receive Date: 20110826
  Receipt Date: 20110826
  Transmission Date: 20111222
  Serious: Yes (Hospitalization)
  Sender: FDA-Public Use
  Company Number: None

PATIENT
  Sex: Female
  Weight: 59.9 kg

DRUGS (3)
  1. OXYCODONE HCL [Concomitant]
  2. TAXOL [Suspect]
     Dosage: 230 MG
  3. IFOSFAMIDE [Suspect]
     Dosage: 8.1 G

REACTIONS (7)
  - RESPIRATORY FAILURE [None]
  - COLONIC OBSTRUCTION [None]
  - CALCULUS URETERIC [None]
  - PLEURAL EFFUSION [None]
  - NEUTROPENIA [None]
  - HALLUCINATION [None]
  - FUNGAEMIA [None]
